FAERS Safety Report 23295414 (Version 2)
Quarter: 2024Q1

REPORT INFORMATION
  Report Type: Spontaneous
  Country: FR (occurrence: FR)
  Receive Date: 20231214
  Receipt Date: 20240314
  Transmission Date: 20240410
  Serious: Yes (Hospitalization, Other)
  Sender: FDA-Public Use
  Company Number: None

PATIENT
  Age: 39 Year
  Sex: Female

DRUGS (4)
  1. ZOLPIDEM TARTRATE [Suspect]
     Active Substance: ZOLPIDEM TARTRATE
     Dosage: UNK
     Route: 042
  2. METHADONE HYDROCHLORIDE [Suspect]
     Active Substance: METHADONE HYDROCHLORIDE
     Dosage: UNK
     Route: 042
  3. COCAINE [Suspect]
     Active Substance: COCAINE
     Dosage: 1 G, QD
     Route: 045
  4. COCAINE [Suspect]
     Active Substance: COCAINE
     Dosage: 1 G, QD
     Route: 042

REACTIONS (5)
  - Purpura [Recovering/Resolving]
  - Necrosis [Recovering/Resolving]
  - Drug dependence [Not Recovered/Not Resolved]
  - Product use issue [Unknown]
  - Intentional product misuse [Unknown]

NARRATIVE: CASE EVENT DATE: 20230405
